FAERS Safety Report 5390189-2 (Version None)
Quarter: 2007Q3

REPORT INFORMATION
  Report Type: 
  Country: None (occurrence: None)
  Receive Date: 20070718
  Receipt Date: 20070706
  Transmission Date: 20080115
  Serious: Yes (Other)
  Sender: FDA-Public Use
  Company Number: SE-AMGEN-US233657

PATIENT
  Sex: Male

DRUGS (1)
  1. ENBREL [Suspect]
     Indication: RHEUMATOID ARTHRITIS
     Dosage: DOSE STRENGTH AND FREQUENCY NOT STATED
     Route: 058
     Dates: start: 20050413

REACTIONS (1)
  - EXTRAPYRAMIDAL DISORDER [None]
